FAERS Safety Report 20778447 (Version 1)
Quarter: 2022Q2

REPORT INFORMATION
  Report Type: Spontaneous
  Country: US (occurrence: None)
  Receive Date: 20220503
  Receipt Date: 20220503
  Transmission Date: 20220721
  Serious: Yes (Other)
  Sender: FDA-Public Use
  Company Number: None

PATIENT
  Age: 66 Year
  Sex: Male
  Weight: 69.75 kg

DRUGS (12)
  1. CREON [Suspect]
     Active Substance: PANCRELIPASE AMYLASE\PANCRELIPASE LIPASE\PANCRELIPASE PROTEASE
     Indication: Pancreatic failure
     Dosage: OTHER FREQUENCY : BEFORE EATING ANYT;?
     Route: 048
  2. Xiafan [Concomitant]
  3. IMODIUM [Concomitant]
     Active Substance: LOPERAMIDE HYDROCHLORIDE
  4. PANTOPRAZOLE SODIUM [Concomitant]
     Active Substance: PANTOPRAZOLE SODIUM
  5. VITAMIN D [Concomitant]
     Active Substance: VITAMIN D NOS
  6. VITAMIN B12 [Concomitant]
     Active Substance: CYANOCOBALAMIN
  7. FISH OIL [Concomitant]
     Active Substance: FISH OIL
  8. E [Concomitant]
  9. C [Concomitant]
  10. ZINC [Concomitant]
     Active Substance: ZINC
  11. MAGNESIUM [Concomitant]
     Active Substance: MAGNESIUM
  12. CALCIUM [Concomitant]
     Active Substance: CALCIUM

REACTIONS (2)
  - Gait disturbance [None]
  - Swelling [None]

NARRATIVE: CASE EVENT DATE: 20220430
